FAERS Safety Report 15984439 (Version 2)
Quarter: 2019Q1

REPORT INFORMATION
  Report Type: Report from Study
  Country: FR (occurrence: FR)
  Receive Date: 20190220
  Receipt Date: 20190305
  Transmission Date: 20190418
  Serious: Yes (Hospitalization)
  Sender: FDA-Public Use
  Company Number: FR-PFIZER INC-2019068681

PATIENT
  Age: 69 Year
  Sex: Male
  Weight: 89 kg

DRUGS (25)
  1. AMLOR [Suspect]
     Active Substance: AMLODIPINE BESYLATE
     Route: 065
  2. TAHOR [Suspect]
     Active Substance: ATORVASTATIN CALCIUM
     Route: 065
  3. ADVAGRAF [Concomitant]
     Active Substance: TACROLIMUS
     Dosage: 0.5 MG, 1X/DAY
     Route: 065
     Dates: start: 20141018, end: 20150320
  4. CORTANCYL [Concomitant]
     Active Substance: PREDNISONE
     Dosage: 2.5 MG, 1X/DAY
     Route: 065
     Dates: start: 20151212, end: 20160329
  5. CERTICAN [Suspect]
     Active Substance: EVEROLIMUS
     Indication: PROPHYLAXIS AGAINST TRANSPLANT REJECTION
     Dosage: 2 MG, QD
     Route: 048
     Dates: start: 20170926
  6. CERTICAN [Suspect]
     Active Substance: EVEROLIMUS
     Dosage: 2.5 MG, QD
     Route: 048
     Dates: start: 20160430, end: 20160725
  7. ADVAGRAF [Concomitant]
     Active Substance: TACROLIMUS
     Dosage: 1 MG, 1X/DAY
     Route: 065
     Dates: start: 20140802, end: 20141017
  8. ADVAGRAF [Concomitant]
     Active Substance: TACROLIMUS
     Dosage: 2 MG, 1X/DAY
     Route: 065
     Dates: start: 20140601, end: 20140801
  9. PROGRAF [Concomitant]
     Active Substance: TACROLIMUS\TACROLIMUS ANHYDROUS
     Indication: IMMUNOSUPPRESSANT DRUG THERAPY
     Dosage: 1.5 MG, QD
     Route: 065
     Dates: start: 20140404, end: 20140530
  10. MYFORTIC [Suspect]
     Active Substance: MYCOPHENOLATE SODIUM
     Indication: LIVER TRANSPLANT
  11. CERTICAN [Suspect]
     Active Substance: EVEROLIMUS
     Dosage: 2 MG, QD
     Route: 048
     Dates: start: 20140601, end: 20150619
  12. CORTANCYL [Concomitant]
     Active Substance: PREDNISONE
     Dosage: 10 MG, 1X/DAY
     Route: 065
     Dates: start: 20150320, end: 20150619
  13. CELLCEPT [Concomitant]
     Active Substance: MYCOPHENOLATE MOFETIL\MYCOPHENOLATE MOFETIL HYDROCHLORIDE
     Dosage: 1000 MG, 1X/DAY
     Route: 065
     Dates: start: 20180531
  14. CERTICAN [Suspect]
     Active Substance: EVEROLIMUS
     Dosage: 1.25 MG, BID
     Route: 048
     Dates: start: 20140530
  15. ADVAGRAF [Concomitant]
     Active Substance: TACROLIMUS
     Indication: IMMUNOSUPPRESSANT DRUG THERAPY
     Dosage: 1 MG, 1X/DAY
     Route: 065
     Dates: start: 20131121
  16. ADVAGRAF [Concomitant]
     Active Substance: TACROLIMUS
     Dosage: 1 MG, 1X/DAY
     Route: 065
     Dates: start: 20160720, end: 20180112
  17. CORTANCYL [Concomitant]
     Active Substance: PREDNISONE
     Indication: IMMUNOSUPPRESSANT DRUG THERAPY
     Dosage: 1 MG, 1X/DAY
     Route: 065
     Dates: start: 20140430, end: 20140530
  18. CELLCEPT [Concomitant]
     Active Substance: MYCOPHENOLATE MOFETIL\MYCOPHENOLATE MOFETIL HYDROCHLORIDE
     Indication: IMMUNOSUPPRESSANT DRUG THERAPY
     Dosage: 2000 MG, 1X/DAY
     Route: 065
     Dates: start: 20170102, end: 20180530
  19. CERTICAN [Suspect]
     Active Substance: EVEROLIMUS
     Indication: IMMUNOSUPPRESSION
     Dosage: 3 MG, QD
     Route: 048
     Dates: start: 20150620, end: 20160429
  20. ADVAGRAF [Concomitant]
     Active Substance: TACROLIMUS
     Dosage: 1 MG, 1X/DAY
     Route: 065
     Dates: start: 20150321, end: 20160603
  21. CERTICAN [Suspect]
     Active Substance: EVEROLIMUS
     Indication: LIVER TRANSPLANT
     Dosage: 3 MG, QD
     Route: 048
     Dates: start: 20160726, end: 20170901
  22. MYFORTIC [Suspect]
     Active Substance: MYCOPHENOLATE SODIUM
     Indication: IMMUNOSUPPRESSANT DRUG THERAPY
     Dosage: 720 MG, 1X/DAY
     Route: 065
     Dates: start: 20140430, end: 20140530
  23. ADVAGRAF [Concomitant]
     Active Substance: TACROLIMUS
     Dosage: 2 MG, 1X/DAY
     Route: 065
     Dates: start: 20160604, end: 20160719
  24. CORTANCYL [Concomitant]
     Active Substance: PREDNISONE
     Dosage: 7.5 MG, 1X/DAY
     Route: 065
     Dates: start: 20150620, end: 20150929
  25. CORTANCYL [Concomitant]
     Active Substance: PREDNISONE
     Dosage: 5 MG, 1X/DAY
     Route: 065
     Dates: start: 20150930, end: 20151211

REACTIONS (11)
  - Muscle spasms [Not Recovered/Not Resolved]
  - Renal injury [Recovering/Resolving]
  - Anaemia [Recovered/Resolved]
  - Pleural effusion [Recovered/Resolved]
  - Anaemia [Recovering/Resolving]
  - Chronic kidney disease [Recovering/Resolving]
  - Depression [Not Recovered/Not Resolved]
  - Oedema peripheral [Recovered/Resolved]
  - Diabetic nephropathy [Recovering/Resolving]
  - Gastrointestinal disorder [Recovering/Resolving]
  - Hypotension [Recovering/Resolving]

NARRATIVE: CASE EVENT DATE: 20141017
